FAERS Safety Report 4641004-3 (Version None)
Quarter: 2005Q2

REPORT INFORMATION
  Report Type: 
  Country: None (occurrence: None)
  Receive Date: 20050419
  Receipt Date: 20050419
  Transmission Date: 20051028
  Serious: No
  Sender: FDA-Public Use
  Company Number: None

PATIENT
  Age: 81 Year
  Sex: Male

DRUGS (2)
  1. TETRAFOSMIN [Suspect]
     Indication: CARDIOVASCULAR EVALUATION
     Dosage: ~ 20 MILLIEURIES IV X 1
     Route: 042
     Dates: start: 20041104
  2. TETRAFOSMIN [Suspect]
     Indication: MYOCARDIAL INFARCTION
     Dosage: ~ 20 MILLIEURIES IV X 1
     Route: 042
     Dates: start: 20041104

REACTIONS (1)
  - RASH [None]
